FAERS Safety Report 24192144 (Version 2)
Quarter: 2024Q3

REPORT INFORMATION
  Report Type: Spontaneous
  Country: GB (occurrence: None)
  Receive Date: 20240809
  Receipt Date: 20240816
  Transmission Date: 20241016
  Serious: Yes (Other)
  Sender: ASTRAZENECA
  Company Number: 2024A178817

PATIENT
  Age: 51 Year
  Weight: 115.5 kg

DRUGS (1)
  1. TEZEPELUMAB [Suspect]
     Active Substance: TEZEPELUMAB
     Indication: Asthma
     Route: 058
     Dates: start: 20240226

REACTIONS (2)
  - Tendonitis [Unknown]
  - Pain [Unknown]

NARRATIVE: CASE EVENT DATE: 20240226
